FAERS Safety Report 14799148 (Version 3)
Quarter: 2020Q3

REPORT INFORMATION
  Report Type: Other
  Country: GB (occurrence: GB)
  Receive Date: 20180424
  Receipt Date: 20200902
  Transmission Date: 20201102
  Serious: No
  Sender: FDA-Public Use
  Company Number: GB-ROCHE-2094635

PATIENT
  Age: 43 Year
  Sex: Female

DRUGS (50)
  1. NORMAL SALINE [Concomitant]
     Active Substance: SODIUM CHLORIDE
     Dosage: 20 OTHER
     Route: 042
     Dates: start: 20161029, end: 20161029
  2. DOCETAXEL. [Suspect]
     Active Substance: DOCETAXEL
     Indication: BREAST CANCER METASTATIC
     Dosage: LOADING DOSE
     Route: 042
     Dates: start: 20160718
  3. CALCIUM GLUCONATE. [Concomitant]
     Active Substance: CALCIUM GLUCONATE
     Route: 042
     Dates: start: 20160909, end: 20160909
  4. DIAZEPAM. [Concomitant]
     Active Substance: DIAZEPAM
     Route: 048
     Dates: start: 20161018, end: 20161018
  5. DOCETAXEL. [Suspect]
     Active Substance: DOCETAXEL
     Dosage: MAINTENANCE DOSE
     Route: 042
     Dates: start: 20160830, end: 20160830
  6. CYCLIZINE [Concomitant]
     Active Substance: CYCLIZINE
     Route: 042
     Dates: start: 20161003, end: 20170326
  7. DIHYDROCODEINE [Concomitant]
     Active Substance: DIHYDROCODEINE
     Indication: PAIN
     Route: 048
     Dates: start: 20160908
  8. ONDANSETRON [Concomitant]
     Active Substance: ONDANSETRON
     Indication: NAUSEA
     Route: 048
     Dates: start: 20160908, end: 20170325
  9. PARACETAMOL [Concomitant]
     Active Substance: ACETAMINOPHEN
     Indication: PAIN
     Route: 042
     Dates: start: 20160908, end: 20170327
  10. PERTUZUMAB. [Suspect]
     Active Substance: PERTUZUMAB
     Indication: BREAST CANCER METASTATIC
     Dosage: LOADING DOSE
     Route: 042
     Dates: start: 20160718
  11. TRASTUZUMAB. [Suspect]
     Active Substance: TRASTUZUMAB
     Indication: BREAST CANCER METASTATIC
     Dosage: LOADING DOSE
     Route: 042
     Dates: start: 20160718
  12. TRASTUZUMAB. [Suspect]
     Active Substance: TRASTUZUMAB
     Dosage: MAINTENANCE DOSE
     Route: 042
     Dates: start: 20160808, end: 20160808
  13. TRASTUZUMAB. [Suspect]
     Active Substance: TRASTUZUMAB
     Dosage: MAINTENANCE DOSE
     Route: 042
     Dates: start: 20160830, end: 20160830
  14. PARACETAMOL [Concomitant]
     Active Substance: ACETAMINOPHEN
     Route: 048
     Dates: start: 20160908, end: 20170327
  15. BISOPROLOL [Concomitant]
     Active Substance: BISOPROLOL
     Route: 048
     Dates: start: 20160930, end: 20160930
  16. CALCIUM GLUCONATE. [Concomitant]
     Active Substance: CALCIUM GLUCONATE
     Route: 042
     Dates: start: 20160925, end: 20160925
  17. CODEINE [Concomitant]
     Active Substance: CODEINE
     Indication: PAIN
     Route: 048
     Dates: start: 20170106, end: 20170106
  18. METRONIDAZOLE. [Concomitant]
     Active Substance: METRONIDAZOLE
     Route: 048
     Dates: start: 20160908, end: 20161202
  19. MORPHINE [Concomitant]
     Active Substance: MORPHINE
     Route: 042
     Dates: start: 20161013, end: 20170321
  20. OXYNORM [Concomitant]
     Active Substance: OXYCODONE HYDROCHLORIDE
     Route: 048
     Dates: start: 20170227, end: 20170227
  21. TOLTERODINE [Concomitant]
     Active Substance: TOLTERODINE
     Route: 048
     Dates: start: 20161118, end: 20161130
  22. PERTUZUMAB. [Suspect]
     Active Substance: PERTUZUMAB
     Dosage: MAINTENANCE DOSE
     Route: 042
     Dates: start: 20160808, end: 20160830
  23. CO?AMOXICLAV [Concomitant]
     Active Substance: AMOXICILLIN\CLAVULANATE POTASSIUM
     Route: 048
     Dates: start: 20161219, end: 20170101
  24. CALCIUM GLUCONATE. [Concomitant]
     Active Substance: CALCIUM GLUCONATE
     Route: 042
     Dates: start: 20160930, end: 20160930
  25. DANAPAROID [Concomitant]
     Active Substance: DANAPAROID
     Dosage: 750 U
     Route: 058
     Dates: start: 20160921, end: 20170106
  26. MAGNESIUM [Concomitant]
     Active Substance: MAGNESIUM
     Dosage: 20 OTHER
     Route: 042
     Dates: start: 20161109, end: 20161109
  27. MAGNESIUM [Concomitant]
     Active Substance: MAGNESIUM
     Dosage: 20 OTHER
     Route: 042
     Dates: start: 20161115, end: 20161115
  28. TEICOPLANIN [Concomitant]
     Active Substance: TEICOPLANIN
     Route: 042
     Dates: start: 20161013, end: 20161216
  29. CITALOPRAM [Concomitant]
     Active Substance: CITALOPRAM HYDROBROMIDE
     Indication: DEPRESSION
     Route: 048
     Dates: start: 20160921
  30. DIHYDROCODEINE [Concomitant]
     Active Substance: DIHYDROCODEINE
     Route: 048
     Dates: start: 20161101, end: 20170326
  31. MAGNASPARTATE [Concomitant]
     Indication: BLOOD MAGNESIUM DECREASED
     Dosage: 10 OTHER
     Dates: start: 20160908
  32. CO?AMOXICLAV [Concomitant]
     Active Substance: AMOXICILLIN\CLAVULANATE POTASSIUM
     Route: 042
     Dates: start: 20161223, end: 20161230
  33. LOPERAMIDE [Concomitant]
     Active Substance: LOPERAMIDE
     Indication: DIARRHOEA
     Route: 048
     Dates: start: 20161230
  34. METOCLOPRAMIDE. [Concomitant]
     Active Substance: METOCLOPRAMIDE
     Route: 042
     Dates: start: 20160909, end: 20161005
  35. ORAMORPH [Concomitant]
     Active Substance: MORPHINE SULFATE
     Route: 048
     Dates: start: 20161214, end: 20161214
  36. TAZOCIN [Concomitant]
     Active Substance: PIPERACILLIN SODIUM\TAZOBACTAM SODIUM
     Route: 042
     Dates: start: 20160908, end: 20161219
  37. CO?AMOXICLAV [Concomitant]
     Active Substance: AMOXICILLIN\CLAVULANATE POTASSIUM
     Route: 048
     Dates: start: 20161229, end: 20170112
  38. CITALOPRAM [Concomitant]
     Active Substance: CITALOPRAM HYDROBROMIDE
     Route: 048
     Dates: start: 20161212, end: 20170327
  39. DIAZEPAM. [Concomitant]
     Active Substance: DIAZEPAM
     Route: 048
     Dates: start: 20161022, end: 20161030
  40. EPOPROSTENOL. [Concomitant]
     Active Substance: EPOPROSTENOL
     Route: 042
     Dates: start: 20160910, end: 20160926
  41. MAGNESIUM [Concomitant]
     Active Substance: MAGNESIUM
     Dosage: 20 OTHER
     Route: 042
     Dates: start: 20161121, end: 20161121
  42. MAGNESIUM ASPARTATE [Concomitant]
     Active Substance: MAGNESIUM ASPARTATE
     Route: 048
     Dates: start: 20161229, end: 20161230
  43. MEROPENEM. [Concomitant]
     Active Substance: MEROPENEM
     Route: 042
     Dates: start: 20161010, end: 20161107
  44. MORPHINE SULPHATE [Concomitant]
     Active Substance: MORPHINE SULFATE
     Route: 048
     Dates: start: 20161222, end: 20170225
  45. OXYCODONE [Concomitant]
     Active Substance: OXYCODONE
     Route: 048
     Dates: start: 20160919, end: 20170223
  46. DOCETAXEL. [Suspect]
     Active Substance: DOCETAXEL
     Dosage: MAINTENANCE DOSE
     Route: 042
     Dates: start: 20160808, end: 20160808
  47. CYCLIZINE [Concomitant]
     Active Substance: CYCLIZINE
     Indication: NAUSEA
     Route: 048
     Dates: start: 20160908
  48. LANSOPRAZOLE. [Concomitant]
     Active Substance: LANSOPRAZOLE
     Route: 048
     Dates: start: 20160908
  49. LANSOPRAZOLE. [Concomitant]
     Active Substance: LANSOPRAZOLE
     Route: 048
     Dates: start: 20161005, end: 20170106
  50. HARTMANS [Concomitant]
     Route: 042
     Dates: start: 20160908, end: 20161213

REACTIONS (1)
  - Stoma site pain [Recovered/Resolved]

NARRATIVE: CASE EVENT DATE: 20161212
